FAERS Safety Report 16418865 (Version 4)
Quarter: 2019Q4

REPORT INFORMATION
  Report Type: Spontaneous
  Country: US (occurrence: US)
  Receive Date: 20190612
  Receipt Date: 20191011
  Transmission Date: 20200122
  Serious: Yes (Hospitalization)
  Sender: FDA-Public Use
  Company Number: US-UNITED THERAPEUTICS-UNT-2019-009675

PATIENT
  Age: 43 Year
  Sex: Female
  Weight: 39.2 kg

DRUGS (2)
  1. REMODULIN [Suspect]
     Active Substance: TREPROSTINIL
     Indication: PULMONARY ARTERIAL HYPERTENSION
     Dosage: 0.015 ?G/KG, CONTINUING
     Route: 058
     Dates: start: 20190424
  2. TADALAFIL. [Concomitant]
     Active Substance: TADALAFIL
     Indication: PRODUCT USED FOR UNKNOWN INDICATION
     Dosage: UNK
     Route: 065

REACTIONS (8)
  - Malaise [Unknown]
  - Pulmonary arterial hypertension [Unknown]
  - Clumsiness [Unknown]
  - Treatment noncompliance [Unknown]
  - Asthenia [Unknown]
  - Fall [Recovered/Resolved]
  - Anaemia [Unknown]
  - Gait disturbance [Unknown]

NARRATIVE: CASE EVENT DATE: 2019
